FAERS Safety Report 14390277 (Version 1)
Quarter: 2018Q1

REPORT INFORMATION
  Report Type: Report from Study
  Country: US (occurrence: US)
  Receive Date: 20180116
  Receipt Date: 20180116
  Transmission Date: 20180509
  Serious: Yes (Other)
  Sender: FDA-Public Use
  Company Number: US-UCBSA-2017044127

PATIENT
  Age: 40 Year
  Sex: Male
  Weight: 144 kg

DRUGS (3)
  1. KEPPRA [Suspect]
     Active Substance: LEVETIRACETAM
     Indication: SEIZURE
     Dosage: 2000 MG, 2X/DAY (BID)
     Route: 048
  2. ZOLOFT [Concomitant]
     Active Substance: SERTRALINE HYDROCHLORIDE
     Indication: PRODUCT USED FOR UNKNOWN INDICATION
     Dosage: 50 MG DAILY
  3. LACOSAMIDE. [Suspect]
     Active Substance: LACOSAMIDE
     Indication: SEIZURE
     Dosage: 300 MG, 2X/DAY (BID)
     Route: 048

REACTIONS (11)
  - Mood swings [Unknown]
  - Seizure [Unknown]
  - Overdose [Unknown]
  - Irritability [Unknown]
  - Amnesia [Unknown]
  - Emotional disorder [Unknown]
  - Hyperacusis [Unknown]
  - Cognitive disorder [Unknown]
  - Anger [Unknown]
  - Depression [Unknown]
  - Off label use [Unknown]

NARRATIVE: CASE EVENT DATE: 20170119
